FAERS Safety Report 8453567-0 (Version None)
Quarter: 2012Q2

REPORT INFORMATION
  Report Type: 
  Country: None (occurrence: None)
  Receive Date: 20120323
  Receipt Date: 20111121
  Transmission Date: 20120825
  Serious: Yes (Other)
  Sender: FDA-Public Use
  Company Number: 163-21880-11092467

PATIENT
  Age: 68 Year
  Sex: Male

DRUGS (3)
  1. LENALIDOMIDE [Suspect]
     Indication: MULTIPLE MYELOMA
     Dosage: 15 MG, PO, 10 MG, PO, 10 MG, DAILY X 21 DAYS THEN OFF 7 DAYS, PO
     Route: 048
     Dates: start: 20101101
  2. LENALIDOMIDE [Suspect]
     Indication: MULTIPLE MYELOMA
     Dosage: 15 MG, PO, 10 MG, PO, 10 MG, DAILY X 21 DAYS THEN OFF 7 DAYS, PO
     Route: 048
     Dates: start: 20110701
  3. LENALIDOMIDE [Suspect]
     Indication: MULTIPLE MYELOMA
     Dosage: 15 MG, PO, 10 MG, PO, 10 MG, DAILY X 21 DAYS THEN OFF 7 DAYS, PO
     Route: 048
     Dates: start: 20100301

REACTIONS (1)
  - PANCYTOPENIA [None]
